FAERS Safety Report 18135539 (Version 1)
Quarter: 2020Q3

REPORT INFORMATION
  Report Type: Spontaneous
  Country: GB (occurrence: GB)
  Receive Date: 20200811
  Receipt Date: 20200811
  Transmission Date: 20201103
  Serious: Yes (Hospitalization)
  Sender: FDA-Public Use
  Company Number: GB-PFIZER INC-2020300169

PATIENT
  Age: 73 Year
  Sex: Female

DRUGS (1)
  1. BOSULIF [Suspect]
     Active Substance: BOSUTINIB MONOHYDRATE
     Dosage: 300 MG, DAILY

REACTIONS (4)
  - Back pain [Unknown]
  - Pulmonary fibrosis [Unknown]
  - Pain [Unknown]
  - Gait disturbance [Unknown]
